FAERS Safety Report 9432117 (Version 2)
Quarter: 2013Q3

REPORT INFORMATION
  Report Type: Spontaneous
  Country: US (occurrence: US)
  Receive Date: 20130731
  Receipt Date: 20130919
  Transmission Date: 20140515
  Serious: Yes (Other)
  Sender: FDA-Public Use
  Company Number: US-PFIZER INC-2013221612

PATIENT
  Age: 63 Year
  Sex: Female
  Weight: 90.7 kg

DRUGS (10)
  1. LYRICA [Suspect]
     Indication: NEURALGIA
     Dosage: 50 MG, 3X/DAY
     Route: 048
     Dates: start: 201305, end: 201307
  2. METFORMIN [Concomitant]
     Indication: DIABETES MELLITUS
     Dosage: 1000 MG, UNK
  3. CITALOPRAM [Concomitant]
     Indication: DEPRESSION
     Dosage: 20 MG, UNK
  4. PRAVASTATIN SODIUM [Concomitant]
     Dosage: 20 MG, UNK
  5. PRAVASTATIN SODIUM [Concomitant]
     Dosage: 40 MG, UNK
  6. AMLODIPINE BESILATE [Concomitant]
     Dosage: 5 MG, UNK
  7. LISINOPRIL [Concomitant]
     Dosage: 20 MG, UNK
  8. GLYBURIDE [Concomitant]
     Dosage: 2.5 MG, UNK
  9. NORCO [Concomitant]
     Dosage: 10-325 MG, UNK
  10. TRAZODONE HYDROCHLORIDE [Concomitant]
     Dosage: 50 MG, UNK

REACTIONS (10)
  - Type 2 diabetes mellitus [Unknown]
  - Pain [Unknown]
  - Abdominal pain [Unknown]
  - Hypertension [Unknown]
  - Diabetic neuropathy [Unknown]
  - Osteoarthritis [Unknown]
  - Hyperlipidaemia [Unknown]
  - Pain [Unknown]
  - Cholelithiasis [Unknown]
  - Insomnia [Unknown]
